FAERS Safety Report 11739842 (Version 2)
Quarter: 2015Q4

REPORT INFORMATION
  Report Type: Spontaneous
  Country: US (occurrence: US)
  Receive Date: 20151110
  Receipt Date: 20151120
  Transmission Date: 20160304
  Serious: No
  Sender: FDA-Public Use
  Company Number: US-ELI_LILLY_AND_COMPANY-US201208007832

PATIENT
  Age: 72 Year
  Sex: Female

DRUGS (1)
  1. FORTEO [Suspect]
     Active Substance: TERIPARATIDE
     Indication: OSTEOPOROSIS
     Dosage: 20 UG, QD
     Route: 065
     Dates: start: 20120816, end: 201209

REACTIONS (19)
  - Hot flush [Unknown]
  - Depression [Unknown]
  - Tremor [Unknown]
  - Feeling hot [Unknown]
  - Dizziness [Unknown]
  - Chills [Unknown]
  - Drug dose omission [Unknown]
  - Intentional product misuse [Unknown]
  - Pain in extremity [Not Recovered/Not Resolved]
  - Pruritus [Unknown]
  - Quality of life decreased [Unknown]
  - Pain [Unknown]
  - Menopause [Not Recovered/Not Resolved]
  - Fatigue [Unknown]
  - Hot flush [Recovered/Resolved]
  - Arthralgia [Not Recovered/Not Resolved]
  - Headache [Unknown]
  - Myalgia [Not Recovered/Not Resolved]
  - Malaise [Unknown]

NARRATIVE: CASE EVENT DATE: 201208
